FAERS Safety Report 14684386 (Version 1)
Quarter: 2018Q1

REPORT INFORMATION
  Report Type: Spontaneous
  Country: FR (occurrence: FR)
  Receive Date: 20180327
  Receipt Date: 20180327
  Transmission Date: 20180509
  Serious: Yes (Life-Threatening, Other)
  Sender: FDA-Public Use
  Company Number: PHHY2015FR129476

PATIENT
  Age: 29 Year
  Sex: Female
  Weight: 51 kg

DRUGS (3)
  1. REVOLADE [Suspect]
     Active Substance: ELTROMBOPAG
     Indication: IMMUNE THROMBOCYTOPENIC PURPURA
     Dosage: UNK, 50MG THEN 25MG
     Route: 048
     Dates: start: 201504, end: 20150721
  2. ORACILLINE [Suspect]
     Active Substance: PENICILLIN V
     Indication: SPLENECTOMY
     Dosage: 1 MIU, BID
     Route: 048
     Dates: start: 201504
  3. CERAZETTE [Suspect]
     Active Substance: DESOGESTREL
     Indication: ORAL CONTRACEPTION
     Dosage: UNK
     Route: 048
     Dates: end: 20150721

REACTIONS (1)
  - Pulmonary embolism [Recovered/Resolved with Sequelae]

NARRATIVE: CASE EVENT DATE: 20150721
